FAERS Safety Report 10503942 (Version 1)
Quarter: 2014Q4

REPORT INFORMATION
  Report Type: Spontaneous
  Country: US (occurrence: None)
  Receive Date: 20141007
  Receipt Date: 20141007
  Transmission Date: 20150528
  Serious: Yes (Hospitalization)
  Sender: FDA-Public Use
  Company Number: None

PATIENT
  Age: 38 Year
  Sex: Female
  Weight: 56.25 kg

DRUGS (1)
  1. HUMIRA [Suspect]
     Active Substance: ADALIMUMAB
     Indication: PUSTULAR PSORIASIS
     Dosage: 40MG, Q2WEEKS
     Dates: start: 20140711, end: 20140804

REACTIONS (4)
  - Pustular psoriasis [None]
  - Condition aggravated [None]
  - Cellulitis [None]
  - Enterococcal infection [None]

NARRATIVE: CASE EVENT DATE: 20140806
